FAERS Safety Report 6509912-6 (Version None)
Quarter: 2009Q4

REPORT INFORMATION
  Report Type: 
  Country: None (occurrence: None)
  Receive Date: 20091222
  Receipt Date: 20091209
  Transmission Date: 20100525
  Serious: Yes (Hospitalization, Other)
  Sender: FDA-Public Use
  Company Number: PHHY2009BR54511

PATIENT
  Age: 85 Year
  Sex: Female

DRUGS (3)
  1. EXELON [Suspect]
     Indication: DEMENTIA ALZHEIMER'S TYPE
     Dosage: 1.5 MG, BID
     Route: 048
     Dates: start: 20060101
  2. EXELON [Suspect]
     Dosage: 3 MG, BID
     Route: 048
  3. EXELON [Suspect]
     Dosage: 1.5 MG, BID
     Route: 048

REACTIONS (8)
  - APHASIA [None]
  - CEREBRAL ISCHAEMIA [None]
  - DECREASED APPETITE [None]
  - DEPRESSION [None]
  - DYSPHAGIA [None]
  - NAUSEA [None]
  - SOMNOLENCE [None]
  - SYNCOPE [None]
